FAERS Safety Report 8162435 (Version 5)
Quarter: 2012Q4

REPORT INFORMATION
  Report Type: Report from Study
  Country: JP (occurrence: JP)
  Receive Date: 20110929
  Receipt Date: 20121226
  Transmission Date: 20130627
  Serious: Yes (Death, Other)
  Sender: FDA-Public Use
  Company Number: JP-ABBOTT-11P-087-0858582-00

PATIENT
  Age: 85 Year
  Sex: Male

DRUGS (5)
  1. HUMIRA [Suspect]
     Indication: CROHN^S DISEASE
     Route: 058
     Dates: start: 20110427, end: 20110427
  2. HUMIRA [Suspect]
     Dates: start: 20110630, end: 20110630
  3. HUMIRA [Suspect]
     Dates: start: 20110719, end: 20110719
  4. HUMIRA [Suspect]
     Dates: start: 20110825, end: 20110825
  5. LOPERAMIDE HYDROCHLORIDE [Concomitant]
     Indication: CROHN^S DISEASE
     Route: 048
     Dates: start: 20110624, end: 20110626

REACTIONS (5)
  - Cardiac failure [Fatal]
  - Atrial flutter [Not Recovered/Not Resolved]
  - Blood pressure decreased [Unknown]
  - Shock [Unknown]
  - Infection [Recovering/Resolving]
